FAERS Safety Report 21006851 (Version 2)
Quarter: 2022Q3

REPORT INFORMATION
  Report Type: Report from Study
  Country: GT (occurrence: GT)
  Receive Date: 20220625
  Receipt Date: 20220813
  Transmission Date: 20221026
  Serious: Yes (Other)
  Sender: FDA-Public Use
  Company Number: GT-NOVARTISPH-NVSC2022GT143796

PATIENT
  Age: 87 Year
  Sex: Female

DRUGS (3)
  1. HYDROCHLOROTHIAZIDE\VALSARTAN [Suspect]
     Active Substance: HYDROCHLOROTHIAZIDE\VALSARTAN
     Indication: Product used for unknown indication
     Dosage: 320/25 MG (STARTED APPROXIMATELY 1 YEAR AGO)
     Route: 065
     Dates: end: 202202
  2. SACUBITRIL\VALSARTAN [Suspect]
     Active Substance: SACUBITRIL\VALSARTAN
     Indication: Product used for unknown indication
     Dosage: 100 MG
     Route: 065
     Dates: start: 202202
  3. EMERGEN [Concomitant]
     Dosage: HALF A TABLET WITH DINNER
     Route: 065

REACTIONS (12)
  - Delirium [Unknown]
  - Cardiac arrest [Unknown]
  - Cerebrovascular accident [Unknown]
  - Cerebral infarction [Unknown]
  - Arteriosclerosis [Unknown]
  - Hypertension [Unknown]
  - Spinal osteoarthritis [Unknown]
  - Hypoglycaemia [Unknown]
  - Dysstasia [Unknown]
  - Gait inability [Unknown]
  - White matter lesion [Unknown]
  - Hyponatraemia [Unknown]

NARRATIVE: CASE EVENT DATE: 20220201
